FAERS Safety Report 20585299 (Version 1)
Quarter: 2022Q1

REPORT INFORMATION
  Report Type: Spontaneous
  Country: US (occurrence: None)
  Receive Date: 20220312
  Receipt Date: 20220312
  Transmission Date: 20220423
  Serious: No
  Sender: FDA-Public Use
  Company Number: 2022A084613

PATIENT
  Sex: Female

DRUGS (1)
  1. FARXIGA [Suspect]
     Active Substance: DAPAGLIFLOZIN PROPANEDIOL
     Indication: Diabetes mellitus
     Route: 048
     Dates: start: 20220113

REACTIONS (8)
  - Skin erosion [Not Recovered/Not Resolved]
  - Burning sensation [Not Recovered/Not Resolved]
  - Genital blister [Recovering/Resolving]
  - Genital rash [Not Recovered/Not Resolved]
  - Disorientation [Not Recovered/Not Resolved]
  - Thinking abnormal [Not Recovered/Not Resolved]
  - Fungal infection [Not Recovered/Not Resolved]
  - Dermatitis diaper [Unknown]
